FAERS Safety Report 16721729 (Version 1)
Quarter: 2019Q3

REPORT INFORMATION
  Report Type: Report from Study
  Country: GR (occurrence: GR)
  Receive Date: 20190820
  Receipt Date: 20190820
  Transmission Date: 20191005
  Serious: Yes (Other)
  Sender: FDA-Public Use
  Company Number: GR-TEVA-2019-GR-1093095

PATIENT
  Age: 58 Year
  Sex: Female

DRUGS (11)
  1. TOVIAZ [Concomitant]
     Active Substance: FESOTERODINE FUMARATE
  2. CIPRALEX [Concomitant]
     Active Substance: ESCITALOPRAM OXALATE
  3. OLMESARTAN MEDOXOMIL. [Suspect]
     Active Substance: OLMESARTAN MEDOXOMIL
     Dosage: UNK
     Route: 048
  4. CLOPIDOGREL BISULFATE. [Suspect]
     Active Substance: CLOPIDOGREL BISULFATE
     Dosage: UNK
     Route: 048
  5. ALIROCUMAB [Suspect]
     Active Substance: ALIROCUMAB
     Indication: HYPERCHOLESTEROLAEMIA
     Dosage: 1 DF, PER 15 DAYS
     Route: 058
  6. CALCIORAL D3 [Concomitant]
  7. LIPIDIL [Concomitant]
     Active Substance: FENOFIBRATE
  8. EZETROL [Concomitant]
     Active Substance: EZETIMIBE
  9. XANAX [Concomitant]
     Active Substance: ALPRAZOLAM
  10. ATORVASTATIN [Concomitant]
     Active Substance: ATORVASTATIN
  11. FOSAVANCE [Concomitant]
     Active Substance: ALENDRONATE SODIUM\CHOLECALCIFEROL

REACTIONS (3)
  - Product use issue [Unknown]
  - Cerebrovascular accident [Unknown]
  - Incorrect dose administered [Unknown]
